FAERS Safety Report 22339413 (Version 1)
Quarter: 2023Q2

REPORT INFORMATION
  Report Type: Spontaneous
  Country: US (occurrence: IR)
  Receive Date: 20230518
  Receipt Date: 20230518
  Transmission Date: 20230721
  Serious: Yes (Other)
  Sender: FDA-Public Use
  Company Number: US-BRISTOL-MYERS SQUIBB COMPANY-2023-068670

PATIENT
  Age: 38 Year
  Sex: Male
  Weight: 77.11 kg

DRUGS (2)
  1. OPDIVO [Suspect]
     Active Substance: NIVOLUMAB
     Indication: Malignant melanoma
     Dosage: STRENGTH AND PRESENTATION OF THE AE: 50MG/10ML?FREQ : EVERY THREE WEEKS
     Dates: start: 202210
  2. YERVOY [Suspect]
     Active Substance: IPILIMUMAB
     Indication: Malignant melanoma
     Dosage: STRENGTH AND PRESENTATION OF THE AE: 50MG/10ML?FREQ: EVERY THREE WEEKS
     Dates: start: 202210

REACTIONS (1)
  - Melanoma recurrent [Unknown]

NARRATIVE: CASE EVENT DATE: 20230401
